FAERS Safety Report 8815128 (Version 7)
Quarter: 2014Q1

REPORT INFORMATION
  Report Type: Spontaneous
  Country: AU (occurrence: AU)
  Receive Date: 20120928
  Receipt Date: 20140313
  Transmission Date: 20141002
  Serious: Yes (Life-Threatening, Hospitalization)
  Sender: FDA-Public Use
  Company Number: AU-JNJFOC-20120909389

PATIENT
  Age: 37 Year
  Sex: Male
  Weight: 70.3 kg

DRUGS (11)
  1. REMICADE [Suspect]
     Indication: COLITIS ULCERATIVE
     Route: 042
     Dates: end: 2011
  2. REMICADE [Suspect]
     Indication: COLITIS ULCERATIVE
     Dosage: LOADING DOSE; 355 MILLIGRAM; 6WKG
     Route: 042
     Dates: start: 20120705, end: 20120814
  3. REMICADE [Suspect]
     Indication: ANKYLOSING SPONDYLITIS
     Route: 042
     Dates: end: 2011
  4. REMICADE [Suspect]
     Indication: ANKYLOSING SPONDYLITIS
     Dosage: LOADING DOSE; 355 MILLIGRAM; 6WKG
     Route: 042
     Dates: start: 20120705, end: 20120814
  5. PREDNISONE [Concomitant]
     Indication: COLITIS ULCERATIVE
     Route: 065
  6. PREDNISONE [Concomitant]
     Indication: ANKYLOSING SPONDYLITIS
     Route: 065
  7. METHOTREXATE [Concomitant]
     Indication: ANKYLOSING SPONDYLITIS
     Route: 065
     Dates: start: 20120814
  8. FOLIC ACID [Concomitant]
     Route: 065
  9. SULFASALAZINE [Concomitant]
     Route: 065
  10. NEXIUM [Concomitant]
     Route: 065
  11. ARCOXIA [Concomitant]
     Route: 065

REACTIONS (6)
  - General physical health deterioration [Recovering/Resolving]
  - Hip arthroplasty [Recovered/Resolved with Sequelae]
  - Histiocytosis haematophagic [Recovering/Resolving]
  - Colitis ulcerative [Unknown]
  - Drug effect incomplete [Unknown]
  - Contusion [Unknown]
